FAERS Safety Report 5075761-1 (Version None)
Quarter: 2006Q3

REPORT INFORMATION
  Report Type: 
  Country: None (occurrence: None)
  Receive Date: 20060809
  Receipt Date: 20060727
  Transmission Date: 20061208
  Serious: Yes (Hospitalization)
  Sender: FDA-Public Use
  Company Number: FR-NOVOPROD-255669

PATIENT
  Sex: Male

DRUGS (9)
  1. INSULATARD FLEXPEN [Suspect]
     Indication: DIABETES MELLITUS
  2. LASILIX [Concomitant]
     Dosage: 80 MG, UNK
     Route: 048
  3. PLAVIX [Concomitant]
     Dosage: 75 MG, UNK
     Route: 048
  4. ATORVASTATIN CALCIUM [Concomitant]
     Dosage: 50 MG, UNK
  5. TRIATEC [Concomitant]
     Dosage: 5 MG, UNK
  6. KAYEXALATE [Concomitant]
  7. OGAST [Concomitant]
     Dosage: 30 MG, UNK
  8. EUPRESSYL [Concomitant]
  9. HYPERIUM [Concomitant]

REACTIONS (1)
  - RENAL FAILURE [None]
